FAERS Safety Report 11842439 (Version 1)
Quarter: 2015Q4

REPORT INFORMATION
  Report Type: Spontaneous
  Country: None (occurrence: None)
  Receive Date: 20151216
  Receipt Date: 20151216
  Transmission Date: 20160305
  Serious: No
  Sender: FDA-Public Use
  Company Number: None

PATIENT
  Age: 48 Year
  Sex: Female
  Weight: 58.97 kg

DRUGS (4)
  1. FISH OIL [Concomitant]
     Active Substance: FISH OIL
  2. MULTI-VITAMIN W/IRON [Concomitant]
  3. CALCIUM [Concomitant]
     Active Substance: CALCIUM
  4. AMOXICILLIN 875 MG MEDCO EXPRESS SCRIPTS [Suspect]
     Active Substance: AMOXICILLIN
     Indication: EAR INFECTION
     Dosage: 1 PILL
     Route: 048
     Dates: start: 20151202, end: 20151212

REACTIONS (3)
  - Tendon pain [None]
  - Joint swelling [None]
  - Tendon disorder [None]

NARRATIVE: CASE EVENT DATE: 20151215
